FAERS Safety Report 7860148-6 (Version None)
Quarter: 2011Q4

REPORT INFORMATION
  Report Type: 
  Country: None (occurrence: None)
  Receive Date: 20111027
  Receipt Date: 20111024
  Transmission Date: 20120403
  Serious: No
  Sender: FDA-Public Use
  Company Number: US-PFIZER INC-2011257639

PATIENT

DRUGS (2)
  1. EFFEXOR XR [Suspect]
     Dosage: 37.5 MG, UNK
  2. EFFEXOR XR [Suspect]
     Dosage: 225 MG, UNK

REACTIONS (1)
  - WITHDRAWAL SYNDROME [None]
